FAERS Safety Report 15699712 (Version 1)
Quarter: 2018Q4

REPORT INFORMATION
  Report Type: Spontaneous
  Country: US (occurrence: US)
  Receive Date: 20181207
  Receipt Date: 20181207
  Transmission Date: 20190205
  Serious: Yes (Other)
  Sender: FDA-Public Use
  Company Number: US-BAYER-2018-223210

PATIENT
  Age: 57 Year
  Sex: Male

DRUGS (3)
  1. ACETYLSALICYLIC ACID (} 100 MG) [Suspect]
     Active Substance: ASPIRIN
     Indication: PLATELET AGGREGATION INHIBITION
  2. WARFARIN [Interacting]
     Active Substance: WARFARIN
  3. HEPARIN [Interacting]
     Active Substance: HEPARIN SODIUM

REACTIONS (3)
  - Gastrointestinal haemorrhage [None]
  - Labelled drug-drug interaction medication error [None]
  - Product administration error [None]
